FAERS Safety Report 15723601 (Version 3)
Quarter: 2019Q1

REPORT INFORMATION
  Report Type: Report from Study
  Country: ZA (occurrence: ZA)
  Receive Date: 20181214
  Receipt Date: 20190301
  Transmission Date: 20190417
  Serious: Yes (Life-Threatening, Hospitalization)
  Sender: FDA-Public Use
  Company Number: ZA-SAKK-2018SA209402AA

PATIENT
  Age: 72 Year
  Sex: Female

DRUGS (7)
  1. DYNA INDAPAMIDE [Concomitant]
     Active Substance: INDAPAMIDE
     Dosage: 1.5 MG, QD (AFTER BREAKFAST)
     Route: 065
     Dates: start: 20180731
  2. TOUJEO [Suspect]
     Active Substance: INSULIN GLARGINE
     Dosage: 26 U, HS
     Route: 065
     Dates: start: 20180730
  3. TOUJEO [Suspect]
     Active Substance: INSULIN GLARGINE
     Dosage: 28 U, HS
     Route: 065
     Dates: start: 20180730
  4. TOUJEO [Suspect]
     Active Substance: INSULIN GLARGINE
     Indication: TYPE 2 DIABETES MELLITUS
     Dosage: 18 U, HS
     Route: 065
     Dates: start: 20180606
  5. STORWIN [Concomitant]
     Active Substance: ROSUVASTATIN CALCIUM
     Dosage: 10 MG, QD (AFTER SUPPER)
     Route: 065
     Dates: start: 20180731
  6. INSULIN GLULISINE [Suspect]
     Active Substance: INSULIN GLULISINE
     Indication: TYPE 2 DIABETES MELLITUS
     Dosage: 14 U, TID
     Route: 065
     Dates: start: 20160106
  7. INSULIN GLULISINE [Suspect]
     Active Substance: INSULIN GLULISINE
     Dosage: 19 U, TID (BEFORE BREAKFAST, BEFORE SUPPER AND BEFORE LUNCH)
     Route: 065
     Dates: start: 20180731

REACTIONS (16)
  - Blood glucose decreased [Recovered/Resolved]
  - Arthralgia [Not Recovered/Not Resolved]
  - Headache [Unknown]
  - Pain in extremity [Unknown]
  - Blood glucose increased [Not Recovered/Not Resolved]
  - Blood glucose decreased [Unknown]
  - Nausea [Recovered/Resolved]
  - Malaise [Unknown]
  - Hypoglycaemia [Recovered/Resolved]
  - Nervousness [Unknown]
  - Blood glucose fluctuation [Unknown]
  - Fallopian tube operation [Unknown]
  - Hyperglycaemia [Recovered/Resolved]
  - Dizziness [Unknown]
  - Bladder operation [Unknown]
  - Dizziness [Recovered/Resolved]

NARRATIVE: CASE EVENT DATE: 20181130
